FAERS Safety Report 6412096-6 (Version None)
Quarter: 2009Q4

REPORT INFORMATION
  Report Type: 
  Country: None (occurrence: None)
  Receive Date: 20091020
  Receipt Date: 20091007
  Transmission Date: 20100525
  Serious: Yes (Death)
  Sender: FDA-Public Use
  Company Number: 2009AC000067

PATIENT
  Age: 45 Year
  Sex: Female

DRUGS (7)
  1. DIGOXIN [Suspect]
     Dosage: 0.25 MG; QD; PO
     Route: 048
     Dates: start: 20000101
  2. LASIX [Concomitant]
  3. TOPROL-XL [Concomitant]
  4. LISINOPRIL [Concomitant]
  5. ZOLOFT [Concomitant]
  6. AMIODARONE HCL [Concomitant]
  7. ASPIRIN [Concomitant]

REACTIONS (22)
  - CARDIAC FAILURE CONGESTIVE [None]
  - CARDIAC HYPERTROPHY [None]
  - CONGESTIVE CARDIOMYOPATHY [None]
  - DEHYDRATION [None]
  - DIZZINESS [None]
  - DYSPNOEA [None]
  - ECONOMIC PROBLEM [None]
  - EJECTION FRACTION DECREASED [None]
  - EMPHYSEMA [None]
  - FATIGUE [None]
  - FIBROSIS [None]
  - HEPATIC CONGESTION [None]
  - HEPATIC STEATOSIS [None]
  - HYPOTENSION [None]
  - INTRACARDIAC THROMBUS [None]
  - MULTIPLE INJURIES [None]
  - PERICARDIAL EFFUSION [None]
  - PULMONARY CONGESTION [None]
  - PULMONARY OEDEMA [None]
  - RENAL FAILURE [None]
  - SURGERY [None]
  - VENTRICULAR TACHYCARDIA [None]
